FAERS Safety Report 25497041 (Version 2)
Quarter: 2025Q3

REPORT INFORMATION
  Report Type: Report from Study
  Country: CA (occurrence: CA)
  Receive Date: 20250701
  Receipt Date: 20250811
  Transmission Date: 20251021
  Serious: Yes (Hospitalization, Other)
  Sender: JOHNSON AND JOHNSON
  Company Number: CA-JNJFOC-20241012227

PATIENT
  Age: 30 Year
  Sex: Female

DRUGS (6)
  1. REMICADE [Suspect]
     Active Substance: INFLIXIMAB
     Indication: Colitis ulcerative
     Route: 041
     Dates: start: 20171121
  2. REMICADE [Suspect]
     Active Substance: INFLIXIMAB
     Route: 041
     Dates: start: 20171121
  3. REMICADE [Suspect]
     Active Substance: INFLIXIMAB
     Route: 041
     Dates: start: 20171121
  4. REMICADE [Suspect]
     Active Substance: INFLIXIMAB
     Route: 041
     Dates: start: 20171121
  5. REMICADE [Suspect]
     Active Substance: INFLIXIMAB
     Route: 041
  6. SLYND [Concomitant]
     Active Substance: DROSPIRENONE
     Indication: Contraception

REACTIONS (4)
  - Exposure during pregnancy [Recovered/Resolved]
  - Lower respiratory tract infection [Recovered/Resolved]
  - Hypertension [Recovered/Resolved]
  - Beta haemolytic streptococcal infection [Recovered/Resolved]

NARRATIVE: CASE EVENT DATE: 20241003
